FAERS Safety Report 16704349 (Version 1)
Quarter: 2019Q3

REPORT INFORMATION
  Report Type: Spontaneous
  Country: GB (occurrence: GB)
  Receive Date: 20190814
  Receipt Date: 20190814
  Transmission Date: 20191004
  Serious: Yes (Other)
  Sender: FDA-Public Use
  Company Number: GB-GILEAD-2019-0423094

PATIENT
  Age: 57 Year
  Sex: Male
  Weight: 85 kg

DRUGS (3)
  1. AMITRIPTYLINE [Concomitant]
     Active Substance: AMITRIPTYLINE
  2. TRUVADA [Suspect]
     Active Substance: EMTRICITABINE\TENOFOVIR DISOPROXIL FUMARATE
     Indication: PROPHYLAXIS AGAINST HIV INFECTION
     Dosage: 1 DOSAGE FORM, QD
     Route: 048
     Dates: start: 20190506, end: 20190605
  3. FLUOXETINE [Concomitant]
     Active Substance: FLUOXETINE HYDROCHLORIDE

REACTIONS (20)
  - Pharyngitis streptococcal [Recovering/Resolving]
  - Chills [Recovering/Resolving]
  - Asthenia [Recovering/Resolving]
  - Lymphadenopathy [Recovering/Resolving]
  - Hyperhidrosis [Recovering/Resolving]
  - Malaise [Recovering/Resolving]
  - Tinnitus [Recovering/Resolving]
  - Pain [Recovering/Resolving]
  - Restlessness [Unknown]
  - Mouth haemorrhage [Unknown]
  - Nausea [Recovering/Resolving]
  - Malaise [Unknown]
  - Oropharyngeal pain [Recovering/Resolving]
  - Burning sensation [Recovering/Resolving]
  - Headache [Recovering/Resolving]
  - Ear infection [Recovering/Resolving]
  - Hypernatraemia [Recovering/Resolving]
  - Blood creatinine increased [Recovering/Resolving]
  - Nightmare [Recovering/Resolving]
  - Dizziness [Unknown]

NARRATIVE: CASE EVENT DATE: 20190516
